FAERS Safety Report 21006736 (Version 1)
Quarter: 2022Q3

REPORT INFORMATION
  Report Type: Spontaneous
  Country: BR (occurrence: BR)
  Receive Date: 20220625
  Receipt Date: 20220625
  Transmission Date: 20221027
  Serious: Yes (Other)
  Sender: FDA-Public Use
  Company Number: BR-NOVARTISPH-NVSC2022BR142650

PATIENT
  Age: 36 Year
  Sex: Male

DRUGS (2)
  1. TEGRETOL XR [Suspect]
     Active Substance: CARBAMAZEPINE
     Indication: Product used for unknown indication
     Dosage: 400 MG (START DATE: 18 YEARS AGO)
     Route: 065
  2. CARBAMAZEPINE [Concomitant]
     Active Substance: CARBAMAZEPINE
     Indication: Product used for unknown indication
     Dosage: 400 MG (START DATE: A WEEK AND A HALF AGO)
     Route: 065

REACTIONS (5)
  - Epilepsy [Recovered/Resolved]
  - Bradyphrenia [Recovered/Resolved]
  - Malaise [Unknown]
  - Diplopia [Recovered/Resolved]
  - Product availability issue [Unknown]
